FAERS Safety Report 11143297 (Version 2)
Quarter: 2015Q2

REPORT INFORMATION
  Report Type: Report from Study
  Country: TW (occurrence: TW)
  Receive Date: 20150526
  Receipt Date: 20150602
  Transmission Date: 20150821
  Serious: Yes (Other)
  Sender: FDA-Public Use
  Company Number: TW-ROCHE-1583014

PATIENT
  Age: 70 Year
  Sex: Female
  Weight: 34.8 kg

DRUGS (1)
  1. MABTHERA [Suspect]
     Active Substance: RITUXIMAB
     Indication: RHEUMATOID ARTHRITIS
     Dosage: 1000MG X2
     Route: 042
     Dates: start: 20140815, end: 20140816

REACTIONS (1)
  - Rectosigmoid cancer [Not Recovered/Not Resolved]

NARRATIVE: CASE EVENT DATE: 20150511
